FAERS Safety Report 21640226 (Version 1)
Quarter: 2022Q4

REPORT INFORMATION
  Report Type: Spontaneous
  Country: CA (occurrence: CA)
  Receive Date: 20221124
  Receipt Date: 20221124
  Transmission Date: 20230112
  Serious: Yes (Other)
  Sender: FDA-Public Use
  Company Number: CA-PFIZER INC-202200771861

PATIENT
  Age: 1 Year
  Sex: Male

DRUGS (6)
  1. SOMATROPIN [Suspect]
     Active Substance: SOMATROPIN
     Indication: Growth hormone deficiency
     Dosage: 400 UG, 6 DAYS/WEEK
     Route: 058
     Dates: start: 202204
  2. SOMATROPIN [Suspect]
     Active Substance: SOMATROPIN
     Indication: Short stature
     Dosage: 400 UG, 6 DAYS/WEEK
     Route: 058
     Dates: start: 202204, end: 2022
  3. SOMATROPIN [Suspect]
     Active Substance: SOMATROPIN
     Dosage: 300 UG, 6 DAYS/WEEK, GOQUICK 5.3MG PEN
     Route: 058
     Dates: start: 2022
  4. PREDNISOLONE [Concomitant]
     Active Substance: PREDNISOLONE
     Dosage: 5 MG, 2X/DAY (IN MORNING AND AT BEDTIME)
     Route: 065
  5. SYNTHROID [Concomitant]
     Active Substance: LEVOTHYROXINE SODIUM
     Dosage: 50 UG, 1X/DAY
     Route: 065
  6. CHOLECALCIFEROL [Concomitant]
     Active Substance: CHOLECALCIFEROL
     Dosage: 1 DF, DOSAGE INFORMATION NOT AVAILABLE
     Route: 065

REACTIONS (4)
  - Viral infection [Recovered/Resolved]
  - Pyrexia [Recovered/Resolved]
  - Device leakage [Unknown]
  - Device defective [Unknown]

NARRATIVE: CASE EVENT DATE: 20220101
